FAERS Safety Report 4853150-X (Version None)
Quarter: 2005Q4

REPORT INFORMATION
  Report Type: 
  Country: None (occurrence: None)
  Receive Date: 20051212
  Receipt Date: 20051202
  Transmission Date: 20060501
  Serious: Yes (Hospitalization, Other)
  Sender: FDA-Public Use
  Company Number: 2005-11-1087

PATIENT
  Age: 60 Year
  Sex: Female

DRUGS (11)
  1. INTRON A [Suspect]
     Indication: HEPATITIS C
     Dosage: SEE IMAGE
     Route: 030
     Dates: start: 20050131, end: 20050213
  2. INTRON A [Suspect]
     Indication: HEPATITIS C
     Dosage: SEE IMAGE
     Route: 030
     Dates: start: 20050131
  3. INTRON A [Suspect]
     Indication: HEPATITIS C
     Dosage: SEE IMAGE
     Route: 030
     Dates: start: 20050215
  4. REBETOL [Suspect]
     Dosage: SEE IMAGE
     Route: 048
     Dates: start: 20050131, end: 20050216
  5. REBETOL [Suspect]
     Dosage: SEE IMAGE
     Route: 048
     Dates: start: 20050217, end: 20050331
  6. REBETOL [Suspect]
     Dosage: SEE IMAGE
     Route: 048
     Dates: start: 20050131
  7. REBETOL [Suspect]
     Dosage: SEE IMAGE
     Route: 048
     Dates: start: 20050401
  8. URSO [Concomitant]
  9. ONON  (PRANLUKAST) [Concomitant]
  10. VERAPAMIL [Concomitant]
  11. THYRADIN S [Concomitant]

REACTIONS (4)
  - DIZZINESS [None]
  - HAEMATURIA [None]
  - HAEMOGLOBIN DECREASED [None]
  - PALPITATIONS [None]
